FAERS Safety Report 21120069 (Version 12)
Quarter: 2023Q4

REPORT INFORMATION
  Report Type: Report from Study
  Country: US (occurrence: US)
  Receive Date: 20220722
  Receipt Date: 20231223
  Transmission Date: 20240110
  Serious: No
  Sender: FDA-Public Use
  Company Number: US-NOVARTISTESTPH-NVSC2022US166135

PATIENT
  Age: 49 Year
  Sex: Female

DRUGS (4)
  1. KESIMPTA [Suspect]
     Active Substance: OFATUMUMAB
     Indication: Multiple sclerosis
     Dosage: 20 MG, QW
     Route: 058
     Dates: start: 20220715
  2. KESIMPTA [Suspect]
     Active Substance: OFATUMUMAB
     Indication: Clinically isolated syndrome
  3. KESIMPTA [Suspect]
     Active Substance: OFATUMUMAB
     Indication: Relapsing-remitting multiple sclerosis
  4. KESIMPTA [Suspect]
     Active Substance: OFATUMUMAB
     Indication: Secondary progressive multiple sclerosis

REACTIONS (24)
  - Dyskinesia [Recovering/Resolving]
  - Fall [Recovering/Resolving]
  - Patella fracture [Recovering/Resolving]
  - Skin abrasion [Recovering/Resolving]
  - Arthralgia [Unknown]
  - Vertigo [Unknown]
  - Malaise [Unknown]
  - Arthropathy [Unknown]
  - Back pain [Unknown]
  - Headache [Unknown]
  - Urinary tract infection [Recovered/Resolved]
  - Influenza like illness [Recovering/Resolving]
  - Pyrexia [Recovering/Resolving]
  - Myalgia [Recovering/Resolving]
  - Asthenia [Recovering/Resolving]
  - Fatigue [Recovered/Resolved]
  - Injection site pruritus [Recovering/Resolving]
  - Injection site pain [Recovering/Resolving]
  - Injection site swelling [Recovering/Resolving]
  - Rotator cuff syndrome [Unknown]
  - Fatigue [Unknown]
  - Muscle injury [Unknown]
  - Balance disorder [Unknown]
  - Meniscus injury [Unknown]

NARRATIVE: CASE EVENT DATE: 20220715
